FAERS Safety Report 5301614-7 (Version None)
Quarter: 2007Q1

REPORT INFORMATION
  Report Type: 
  Country: None (occurrence: None)
  Receive Date: 20070201
  Receipt Date: 20061218
  Transmission Date: 20070707
  Serious: No
  Sender: FDA-Public Use
  Company Number: 2006PV027129

PATIENT
  Age: 43 Year
  Sex: Female

DRUGS (3)
  1. BYETTA [Suspect]
     Indication: DIABETES MELLITUS NON-INSULIN-DEPENDENT
     Dosage: SEE IMAGE
     Route: 058
     Dates: start: 20060701, end: 20061101
  2. BYETTA [Suspect]
     Indication: DIABETES MELLITUS NON-INSULIN-DEPENDENT
     Dosage: SEE IMAGE
     Route: 058
     Dates: start: 20061127, end: 20061215
  3. METFORMIN HCL [Concomitant]

REACTIONS (5)
  - ASTHENIA [None]
  - CHEST DISCOMFORT [None]
  - FOOD AVERSION [None]
  - MEDICATION ERROR [None]
  - VOMITING [None]
